FAERS Safety Report 20702785 (Version 2)
Quarter: 2022Q3

REPORT INFORMATION
  Report Type: Spontaneous
  Country: JP (occurrence: JP)
  Receive Date: 20220412
  Receipt Date: 20220922
  Transmission Date: 20221027
  Serious: Yes (Death, Other)
  Sender: FDA-Public Use
  Company Number: JP-BRISTOL-MYERS SQUIBB COMPANY-2022-019106

PATIENT
  Age: 80 Year
  Sex: Male

DRUGS (6)
  1. YERVOY [Suspect]
     Active Substance: IPILIMUMAB
     Indication: Non-small cell lung cancer recurrent
     Route: 041
  2. YERVOY [Suspect]
     Active Substance: IPILIMUMAB
     Route: 041
  3. YERVOY [Suspect]
     Active Substance: IPILIMUMAB
  4. OPDIVO [Suspect]
     Active Substance: NIVOLUMAB
     Indication: Non-small cell lung cancer recurrent
     Route: 041
  5. OPDIVO [Suspect]
     Active Substance: NIVOLUMAB
     Route: 041
  6. OPDIVO [Suspect]
     Active Substance: NIVOLUMAB

REACTIONS (2)
  - Non-small cell lung cancer [Fatal]
  - Stomatitis [Unknown]
